FAERS Safety Report 8837670 (Version 1)
Quarter: 2012Q4

REPORT INFORMATION
  Report Type: 
  Country: DK (occurrence: FR)
  Receive Date: 20121012
  Receipt Date: 20121012
  Transmission Date: 20130627
  Serious: Yes (Hospitalization)
  Sender: FDA-Public Use
  Company Number: FR-SHIRE-ALL1-2012-04910

PATIENT
  Age: 64 Year
  Sex: Male

DRUGS (8)
  1. 426 (MIDODRINE) [Suspect]
     Indication: PRODUCT USED FOR UNKNOWN INDICATION
     Dosage: 30 mg, 1x/day:qd  (twelve  2.5 mg tabs daily)
     Route: 048
     Dates: start: 201108, end: 201206
  2. DEPAKINE CHRONO [Suspect]
     Indication: PRODUCT USED FOR UNKNOWN INDICATION
     Dosage: 3 g, 1x/day:qd (six  500 mg tabs daily)
     Route: 048
     Dates: start: 201108
  3. KEPPRA [Suspect]
     Indication: PRODUCT USED FOR UNKNOWN INDICATION
     Dosage: 2 g, 1x/day:qd (four  500mg tabs daily)
     Route: 048
     Dates: start: 201108
  4. STABLON [Suspect]
     Indication: PRODUCT USED FOR UNKNOWN INDICATION
     Dosage: 37.5 mg, 1x/day:qd  (three  12.5 mg tabs daily)
     Route: 048
     Dates: start: 201108
  5. PREVISCAN [Suspect]
     Indication: PRODUCT USED FOR UNKNOWN INDICATION
     Dosage: 10 mg, 1x/day:qd  (10 mg daily from 20 mg tablet)
     Route: 048
     Dates: start: 201108, end: 20120703
  6. PREVISCAN [Suspect]
     Dosage: 15 mg, Other ((15 mg daily on even days, from 20 mg tablet)
     Route: 048
     Dates: start: 20120704
  7. PREVISCAN [Suspect]
     Dosage: 10 mg, Other (10 mg daily taken on odd days out of 20 mg tablet)
     Route: 048
     Dates: start: 20120704
  8. INEXIUM [Suspect]
     Indication: PRODUCT USED FOR UNKNOWN INDICATION
     Dosage: 20 mg, 1x/day:qd
     Route: 048
     Dates: start: 201108, end: 201206

REACTIONS (1)
  - Pancreatitis acute [Recovered/Resolved]
